FAERS Safety Report 9527497 (Version 1)
Quarter: 2013Q3

REPORT INFORMATION
  Report Type: Spontaneous
  Country: US (occurrence: None)
  Receive Date: 20130913
  Receipt Date: 20130913
  Transmission Date: 20140515
  Serious: Yes (Other)
  Sender: FDA-Public Use
  Company Number: None

PATIENT
  Age: 72 Year
  Sex: Female
  Weight: 94.35 kg

DRUGS (10)
  1. CLONAZEPAM ODT 0.25 MG [Suspect]
     Indication: ANXIETY
     Dosage: 0.25 MG AT FIRST, DOUBLED LATER, 1 PILL AT 1ST THEN DOUBLED
     Route: 048
     Dates: start: 2011, end: 20130627
  2. CLONAZEPAM ODT 0.25 MG [Suspect]
     Indication: TENSION
     Dosage: 0.25 MG AT FIRST, DOUBLED LATER, 1 PILL AT 1ST THEN DOUBLED
     Route: 048
     Dates: start: 2011, end: 20130627
  3. AMLODIPINE [Concomitant]
  4. METOPROLOL [Concomitant]
  5. ESTRADIOL [Concomitant]
  6. LIBRAX [Concomitant]
  7. CELEBREX [Concomitant]
  8. TRAMADOL [Concomitant]
  9. COOPER COMPLETE VIT [Concomitant]
  10. ADVANCED OMEGA 3 [Concomitant]

REACTIONS (2)
  - Feeling abnormal [None]
  - Malaise [None]
